FAERS Safety Report 5474363-2 (Version None)
Quarter: 2007Q4

REPORT INFORMATION
  Report Type: 
  Country: None (occurrence: None)
  Receive Date: 20071002
  Receipt Date: 20070925
  Transmission Date: 20080405
  Serious: Yes (Other)
  Sender: FDA-Public Use
  Company Number: PHEH2007US12798

PATIENT
  Age: 44 Year
  Sex: Female

DRUGS (2)
  1. TEKTURNA [Suspect]
     Indication: HYPERTENSION
     Dosage: 150 MG, QD
     Route: 048
     Dates: start: 20070904, end: 20070925
  2. TEKTURNA [Suspect]
     Dosage: 300 MG, UNK

REACTIONS (2)
  - BIOPSY BREAST [None]
  - HYPERTENSION [None]
